FAERS Safety Report 14298448 (Version 1)
Quarter: 2017Q4

REPORT INFORMATION
  Report Type: Spontaneous
  Country: US (occurrence: US)
  Receive Date: 20171215
  Receipt Date: 20171215
  Transmission Date: 20180321
  Serious: Yes (Hospitalization)
  Sender: FDA-Public Use
  Company Number: None

PATIENT
  Age: 66 Year
  Sex: Female
  Weight: 83.25 kg

DRUGS (14)
  1. OTREXUP [Concomitant]
     Active Substance: METHOTREXATE
  2. LEUCOVORIN. [Concomitant]
     Active Substance: LEUCOVORIN
  3. PRISTIQ EXTENDED-RELEASE [Concomitant]
     Active Substance: DESVENLAFAXINE SUCCINATE
  4. FOLIC ACID. [Concomitant]
     Active Substance: FOLIC ACID
  5. CLONAZEPAM. [Concomitant]
     Active Substance: CLONAZEPAM
  6. COLACE [Concomitant]
     Active Substance: DOCUSATE SODIUM
  7. ACTEMRA [Suspect]
     Active Substance: TOCILIZUMAB
     Indication: RHEUMATOID ARTHRITIS
     Dosage: QUANTITY:1 SYRINGE;OTHER FREQUENCY:1X WEEKLY;?
     Route: 058
     Dates: start: 20140221, end: 20171106
  8. METHOTREXATE. [Concomitant]
     Active Substance: METHOTREXATE
  9. BUPROP [Concomitant]
     Active Substance: BUPROPION
  10. RESTASIS [Concomitant]
     Active Substance: CYCLOSPORINE
  11. ASPIRIN. [Concomitant]
     Active Substance: ASPIRIN
  12. CITRACAL WITH VIT. D [Concomitant]
  13. TOPIRAMATE. [Concomitant]
     Active Substance: TOPIRAMATE
  14. AZELASTINE. [Concomitant]
     Active Substance: AZELASTINE HYDROCHLORIDE

REACTIONS (2)
  - Diverticulitis [None]
  - Diverticular perforation [None]

NARRATIVE: CASE EVENT DATE: 20171110
